FAERS Safety Report 23333992 (Version 1)
Quarter: 2023Q4

REPORT INFORMATION
  Report Type: Spontaneous
  Country: US (occurrence: US)
  Receive Date: 20231223
  Receipt Date: 20231223
  Transmission Date: 20240110
  Serious: No
  Sender: FDA-Public Use
  Company Number: US-ABBVIE-5544658

PATIENT
  Sex: Male

DRUGS (6)
  1. HUMIRA [Suspect]
     Active Substance: ADALIMUMAB
     Indication: Tenosynovitis
     Dosage: FORM STRENGTH: 40 MILLIGRAM
     Route: 058
  2. HUMIRA [Suspect]
     Active Substance: ADALIMUMAB
     Indication: Paraesthesia
  3. HUMIRA [Suspect]
     Active Substance: ADALIMUMAB
     Indication: Synovitis
  4. HUMIRA [Suspect]
     Active Substance: ADALIMUMAB
     Indication: Hyperuricaemia
  5. HUMIRA [Suspect]
     Active Substance: ADALIMUMAB
     Indication: Peripheral spondyloarthritis
  6. HUMIRA [Suspect]
     Active Substance: ADALIMUMAB
     Indication: Vasculitis

REACTIONS (3)
  - Tendon pain [Unknown]
  - Off label use [Not Recovered/Not Resolved]
  - Injection site discharge [Not Recovered/Not Resolved]
